FAERS Safety Report 8854806 (Version 2)
Quarter: 2014Q2

REPORT INFORMATION
  Report Type: Report from Study
  Country: DE (occurrence: DE)
  Receive Date: 20121023
  Receipt Date: 20140607
  Transmission Date: 20141212
  Serious: Yes (Hospitalization, Other)
  Sender: FDA-Public Use
  Company Number: PHHY2012DE015768

PATIENT
  Age: 45 Year
  Sex: Female

DRUGS (1)
  1. EXTAVIA [Suspect]
     Indication: MULTIPLE SCLEROSIS
     Dosage: 1 ML, QW3 (3 TIMES A WEEK)
     Route: 058
     Dates: start: 20100318

REACTIONS (7)
  - Fall [Not Recovered/Not Resolved]
  - Radius fracture [Not Recovered/Not Resolved]
  - Gait disturbance [Not Recovered/Not Resolved]
  - Infection [Recovered/Resolved]
  - Balance disorder [Recovered/Resolved]
  - Paraesthesia [Recovered/Resolved]
  - Hepatic enzyme increased [Not Recovered/Not Resolved]
